FAERS Safety Report 11516310 (Version 1)
Quarter: 2015Q3

REPORT INFORMATION
  Report Type: Spontaneous
  Country: US (occurrence: None)
  Receive Date: 20150916
  Receipt Date: 20150916
  Transmission Date: 20151125
  Serious: No
  Sender: FDA-Public Use
  Company Number: None

PATIENT
  Age: 58 Year
  Sex: Female

DRUGS (3)
  1. DEXAMETHASON 25MG TAB UNKNOWN- NOT DISP THRU WSP [Suspect]
     Active Substance: DEXAMETHASONE
     Dates: end: 201508
  2. LETROZOLE. [Concomitant]
     Active Substance: LETROZOLE
  3. IBRANCE [Suspect]
     Active Substance: PALBOCICLIB
     Indication: BREAST CANCER FEMALE
     Dosage: 100MG DAILY X 21 PO
     Route: 048
     Dates: start: 20150630

REACTIONS (1)
  - Nervous system disorder [None]

NARRATIVE: CASE EVENT DATE: 20150827
